FAERS Safety Report 13568441 (Version 2)
Quarter: 2023Q4

REPORT INFORMATION
  Report Type: Spontaneous
  Country: US (occurrence: US)
  Receive Date: 20170522
  Receipt Date: 20231215
  Transmission Date: 20240109
  Serious: Yes (Other)
  Sender: FDA-Public Use
  Company Number: US-PFIZER INC-2017218238

PATIENT
  Age: 65 Year
  Sex: Female

DRUGS (15)
  1. XELJANZ XR [Suspect]
     Active Substance: TOFACITINIB CITRATE
     Indication: Rheumatoid arthritis
     Dosage: UNK
     Dates: start: 20170303, end: 20170304
  2. XELJANZ XR [Suspect]
     Active Substance: TOFACITINIB CITRATE
     Dosage: UNK
     Dates: start: 20170415
  3. XELJANZ XR [Suspect]
     Active Substance: TOFACITINIB CITRATE
     Dosage: 11 MG, DAILY
     Route: 048
     Dates: start: 20170330
  4. HYDROCHLOROTHIAZIDE [Concomitant]
     Active Substance: HYDROCHLOROTHIAZIDE
     Dosage: UNK
  5. ATENOLOL [Concomitant]
     Active Substance: ATENOLOL
     Dosage: UNK
  6. ATORVASTATIN [Concomitant]
     Active Substance: ATORVASTATIN
     Dosage: UNK
  7. DULOXETINE [Concomitant]
     Active Substance: DULOXETINE
     Dosage: UNK
  8. METHIMAZOLE [Concomitant]
     Active Substance: METHIMAZOLE
     Dosage: UNK
  9. POLYETHYLENE GLYCOLS [Concomitant]
     Active Substance: POLYETHYLENE GLYCOLS
     Dosage: UNK
  10. ALEVE [Concomitant]
     Active Substance: NAPROXEN SODIUM
     Dosage: UNK
  11. BIOTIN [Concomitant]
     Active Substance: BIOTIN
     Dosage: UNK
  12. SYNTHROID [Concomitant]
     Active Substance: LEVOTHYROXINE SODIUM
     Dosage: UNK
  13. VITAMIN D3 [Concomitant]
     Active Substance: CHOLECALCIFEROL
     Dosage: UNK
  14. OMEPRAZOLE [Concomitant]
     Active Substance: OMEPRAZOLE
     Dosage: UNK
  15. FLUCELVAX QUADRIVALENT NOS [Concomitant]
     Active Substance: INFLUENZA A VIRUS A/BRISBANE/10/2010 (H1N1) ANTIGEN (MDCK CELL DERIVED, PROPIOLACTONE INACTIVATED)\I
     Indication: Immunisation
     Dosage: 2023-2024
     Dates: start: 2023

REACTIONS (9)
  - Gait inability [Unknown]
  - Motor dysfunction [Unknown]
  - Respiratory tract infection [Unknown]
  - Urinary tract infection [Unknown]
  - Skin cancer [Recovered/Resolved]
  - White blood cell count abnormal [Unknown]
  - Pain [Unknown]
  - Condition aggravated [Recovered/Resolved]
  - Sensitivity to weather change [Recovered/Resolved]

NARRATIVE: CASE EVENT DATE: 20170401
